FAERS Safety Report 7437775-3 (Version None)
Quarter: 2011Q2

REPORT INFORMATION
  Report Type: 
  Country: None (occurrence: None)
  Receive Date: 20110421
  Receipt Date: 20110421
  Transmission Date: 20111010
  Serious: Yes (Hospitalization)
  Sender: FDA-Public Use
  Company Number: None

PATIENT
  Sex: Male
  Weight: 77 kg

DRUGS (10)
  1. COLACE [Concomitant]
  2. NEURONTIN [Concomitant]
  3. BMX [Concomitant]
  4. SENNA [Concomitant]
  5. OXYCODONE HCL [Concomitant]
  6. PRILOSEC [Concomitant]
  7. SUTENT [Suspect]
     Indication: RENAL CELL CARCINOMA
     Dosage: 37.5 MG, DAILY, PO
     Route: 048
     Dates: start: 20110113, end: 20110325
  8. ZOFRAN [Concomitant]
  9. OXYCONTIN [Concomitant]
  10. COMPAZINE [Concomitant]

REACTIONS (1)
  - CONSTIPATION [None]
